FAERS Safety Report 25812055 (Version 1)
Quarter: 2025Q3

REPORT INFORMATION
  Report Type: Spontaneous
  Country: EG (occurrence: EG)
  Receive Date: 20250917
  Receipt Date: 20250917
  Transmission Date: 20251020
  Serious: Yes (Other)
  Sender: HIKMA
  Company Number: EG-HIKMA PHARMACEUTICALS-EG-H14001-25-10429

PATIENT
  Age: 59 Year
  Sex: Female

DRUGS (2)
  1. CARBOPLATIN [Suspect]
     Active Substance: CARBOPLATIN
     Indication: Breast cancer
     Dosage: 621 MILLIGRAM, 3W, (WEEK ONE, SECOND CYCLE)
     Route: 041
     Dates: start: 20250420
  2. PACLITAXEL [Suspect]
     Active Substance: PACLITAXEL
     Indication: Breast cancer
     Dosage: 144 MILLIGRAM, 3W, ON DAYS 1, 8, AND 15, (WEEK ONE, SECOND CYCLE)
     Route: 041
     Dates: start: 20250420

REACTIONS (3)
  - Neuropathy peripheral [Not Recovered/Not Resolved]
  - Epistaxis [Not Recovered/Not Resolved]
  - Dyspnoea [Not Recovered/Not Resolved]

NARRATIVE: CASE EVENT DATE: 20250421
